FAERS Safety Report 5796098-9 (Version None)
Quarter: 2008Q2

REPORT INFORMATION
  Report Type: 
  Country: None (occurrence: None)
  Receive Date: 20080626
  Receipt Date: 20080612
  Transmission Date: 20081010
  Serious: Yes (Death, Other)
  Sender: FDA-Public Use
  Company Number: OPER20080027

PATIENT
  Age: 45 Year
  Sex: Male

DRUGS (5)
  1. OPANA ER [Suspect]
     Indication: PAIN
     Dosage: 20 MG, 1 TAB DAILY, PER ORAL
     Route: 048
     Dates: start: 20080205, end: 20080214
  2. METHADON HCL TAB [Suspect]
     Dates: end: 20080201
  3. NORCO [Suspect]
     Indication: PAIN
     Dosage: 1 TAB 3 TIMES DAILY,PER ORAL
     Route: 048
     Dates: start: 20080131, end: 20080214
  4. DIAZEPAM [Suspect]
     Dosage: 10 MG, 1 TAB 3 TIMES DAILY, PER
     Dates: start: 20080124, end: 20080214
  5. AMITRIPTYLINE HCL [Suspect]
     Indication: DEPRESSION
     Dosage: 150 MG, 2 TABS QHS, PER ORAL
     Route: 048
     Dates: start: 20080128, end: 20080214

REACTIONS (2)
  - ACCIDENTAL DEATH [None]
  - DRUG TOXICITY [None]
